FAERS Safety Report 16683889 (Version 1)
Quarter: 2019Q3

REPORT INFORMATION
  Report Type: Spontaneous
  Country: US (occurrence: US)
  Receive Date: 20190808
  Receipt Date: 20190808
  Transmission Date: 20191004
  Serious: Yes (Hospitalization, Other)
  Sender: FDA-Public Use
  Company Number: US-GLAXOSMITHKLINE-US2019AMR141192

PATIENT
  Sex: Female
  Weight: 89.4 kg

DRUGS (3)
  1. ADVAIR DISKUS [Suspect]
     Active Substance: FLUTICASONE PROPIONATE\SALMETEROL XINAFOATE
     Indication: PRODUCT USED FOR UNKNOWN INDICATION
     Dosage: 1 PUFF(S), BID
  2. LANSOPRAZOLE. [Suspect]
     Active Substance: LANSOPRAZOLE
     Indication: PRODUCT USED FOR UNKNOWN INDICATION
     Dosage: 30 MG, BID
  3. ZANTAC [Suspect]
     Active Substance: RANITIDINE HYDROCHLORIDE
     Indication: PRODUCT USED FOR UNKNOWN INDICATION
     Dosage: 150 MG, QD

REACTIONS (17)
  - Macular fibrosis [Unknown]
  - Immunosuppression [Unknown]
  - Obesity [Unknown]
  - Breast calcifications [Unknown]
  - Hypersensitivity [Unknown]
  - Blood pressure increased [Recovering/Resolving]
  - Fibromyalgia [Unknown]
  - Rheumatoid arthritis [Unknown]
  - Vitreous degeneration [Unknown]
  - Gastrooesophageal reflux disease [Unknown]
  - Osteomyelitis [Unknown]
  - Vitreous detachment [Unknown]
  - Asthma [Unknown]
  - Insomnia [Unknown]
  - Hypertriglyceridaemia [Unknown]
  - Tooth infection [Unknown]
  - Dysphonia [Unknown]
